FAERS Safety Report 13189068 (Version 1)
Quarter: 2017Q1

REPORT INFORMATION
  Report Type: Spontaneous
  Country: FR (occurrence: FR)
  Receive Date: 20170206
  Receipt Date: 20170206
  Transmission Date: 20170428
  Serious: Yes (Other)
  Sender: FDA-Public Use
  Company Number: FR-PFIZER INC-2017041570

PATIENT
  Age: 70 Year
  Sex: Male

DRUGS (15)
  1. COVERAM [Concomitant]
     Active Substance: AMLODIPINE\PERINDOPRIL
  2. CETUXIMAB. [Concomitant]
     Active Substance: CETUXIMAB
     Dosage: 2ND CYCLE
     Dates: start: 20170109, end: 20170109
  3. AZANTAC [Suspect]
     Active Substance: RANITIDINE HYDROCHLORIDE
     Indication: PREMEDICATION
     Dosage: 50 MG, SINGLE
     Route: 042
     Dates: start: 20170109, end: 20170109
  4. LEVOTHYROX [Concomitant]
     Active Substance: LEVOTHYROXINE
     Dosage: 100 UG, UNK
  5. KARDEGIC [Concomitant]
     Active Substance: ASPIRIN LYSINE
     Dosage: 75 MG, UNK
  6. ORAMORPH [Concomitant]
     Active Substance: MORPHINE SULFATE
     Dosage: 4 GTT, IF PAIN
  7. SOLU-MEDROL [Suspect]
     Active Substance: METHYLPREDNISOLONE SODIUM SUCCINATE
     Indication: PREMEDICATION
     Dosage: 40 MG, SINGLE
     Route: 042
     Dates: start: 20170109, end: 20170109
  8. LYRICA [Concomitant]
     Active Substance: PREGABALIN
     Dosage: 70 MG, 2X/DAY
  9. PANTOPRAZOLE [Concomitant]
     Active Substance: PANTOPRAZOLE SODIUM
  10. SKENAN [Concomitant]
     Active Substance: MORPHINE SULFATE
     Dosage: 20 MG, 2X/DAY
  11. CARBOPLATINE [Concomitant]
     Active Substance: CARBOPLATIN
     Indication: HYPOPHARYNGEAL CANCER
     Dosage: 1ST CYCLE
     Dates: start: 20161216, end: 20161216
  12. CARBOPLATINE [Concomitant]
     Active Substance: CARBOPLATIN
     Dosage: 2ND CYCLE
     Dates: start: 20170109, end: 20170109
  13. DAFALGAN CODEINE [Concomitant]
     Active Substance: ACETAMINOPHEN\CODEINE PHOSPHATE
  14. PHENERGAN [Suspect]
     Active Substance: PROMETHAZINE HYDROCHLORIDE
     Indication: PREMEDICATION
     Dosage: 50 MG, SINGLE
     Route: 042
     Dates: start: 20170109, end: 20170109
  15. CETUXIMAB. [Concomitant]
     Active Substance: CETUXIMAB
     Indication: HYPOPHARYNGEAL CANCER
     Dosage: 1ST CYCLE
     Dates: start: 20161216, end: 20161216

REACTIONS (3)
  - Somnolence [Recovered/Resolved]
  - Apnoea [Unknown]
  - Nausea [Unknown]

NARRATIVE: CASE EVENT DATE: 20170109
